FAERS Safety Report 8947119 (Version 3)
Quarter: 2012Q4

REPORT INFORMATION
  Report Type: 
  Country: HU (occurrence: HU)
  Receive Date: 20121205
  Receipt Date: 20121220
  Transmission Date: 20130627
  Serious: Yes (Death)
  Sender: FDA-Public Use
  Company Number: HU-ABBOTT-12P-076-1015799-00

PATIENT
  Sex: Female
  Weight: 80 kg

DRUGS (7)
  1. LIPIDIL [Suspect]
     Indication: BLOOD TRIGLYCERIDES INCREASED
     Route: 048
     Dates: start: 201209, end: 201210
  2. GLUCOBAY [Concomitant]
     Indication: PRODUCT USED FOR UNKNOWN INDICATION
     Route: 048
  3. MERCKFORMIN [Concomitant]
     Indication: PRODUCT USED FOR UNKNOWN INDICATION
     Route: 048
  4. ABONDA [Concomitant]
     Indication: PRODUCT USED FOR UNKNOWN INDICATION
     Route: 048
  5. ASTRIX [Concomitant]
     Indication: PRODUCT USED FOR UNKNOWN INDICATION
     Route: 048
  6. COSOPT [Concomitant]
     Indication: GLAUCOMA
     Dosage: eye drops
  7. XANAX [Concomitant]
     Indication: PRODUCT USED FOR UNKNOWN INDICATION
     Route: 048

REACTIONS (4)
  - Cardiac failure [Fatal]
  - Coronary artery thrombosis [Fatal]
  - Arteriosclerosis coronary artery [Fatal]
  - Arrhythmia [Fatal]
